FAERS Safety Report 4677211-3 (Version None)
Quarter: 2005Q2

REPORT INFORMATION
  Report Type: 
  Country: None (occurrence: None)
  Receive Date: 20050526
  Receipt Date: 20050526
  Transmission Date: 20051028
  Serious: Yes (Death)
  Sender: FDA-Public Use
  Company Number: None

PATIENT
  Age: 36 Year
  Sex: Female
  Weight: 81.0124 kg

DRUGS (4)
  1. CYTARABINE [Suspect]
     Indication: ACUTE MYELOID LEUKAEMIA
     Dosage: 368 MG IV QD X 7 DAY
     Route: 042
     Dates: start: 20050514, end: 20050518
  2. MYLOTARG [Suspect]
     Indication: ACUTE MYELOID LEUKAEMIA
     Dosage: 11 MG IV DAY 1
     Route: 042
     Dates: start: 20050514, end: 20050518
  3. MYLOTARG [Suspect]
  4. MYLOTARG [Suspect]

REACTIONS (3)
  - HEADACHE [None]
  - PAIN [None]
  - PROCEDURAL COMPLICATION [None]
